FAERS Safety Report 8593730 (Version 2)
Quarter: 2014Q1

REPORT INFORMATION
  Report Type: Spontaneous
  Country: US (occurrence: US)
  Receive Date: 20120604
  Receipt Date: 20140131
  Transmission Date: 20141002
  Serious: Yes (Hospitalization, Other)
  Sender: FDA-Public Use
  Company Number: US-ASTRAZENECA-2012SE34813

PATIENT
  Age: 65 Year
  Sex: Female

DRUGS (13)
  1. NEXIUM [Suspect]
     Indication: GASTROOESOPHAGEAL REFLUX DISEASE
     Route: 048
  2. NEXIUM [Suspect]
     Indication: GASTROOESOPHAGEAL REFLUX DISEASE
     Dosage: ONCE OR TWICE PER DAY
     Route: 048
  3. PREVACID [Concomitant]
     Indication: GASTROOESOPHAGEAL REFLUX DISEASE
  4. PEPCID [Concomitant]
     Indication: GASTROOESOPHAGEAL REFLUX DISEASE
  5. MILK OF MAGNESIA [Concomitant]
     Indication: ABDOMINAL DISCOMFORT
  6. ASPIRIN [Concomitant]
  7. MAGNESIUM [Concomitant]
  8. ISOSORBIDE [Concomitant]
  9. NOVOLOD [Concomitant]
  10. LANTAS [Concomitant]
  11. TRAMADOL [Concomitant]
  12. DIVON [Concomitant]
  13. POTASSIUM [Concomitant]

REACTIONS (7)
  - Cerebrovascular accident [Unknown]
  - Urinary tract infection [Unknown]
  - Osteoporosis [Unknown]
  - Tibia fracture [Unknown]
  - Hypertension [Unknown]
  - Anxiety [Unknown]
  - Depression [Unknown]
